FAERS Safety Report 22935442 (Version 3)
Quarter: 2025Q3

REPORT INFORMATION
  Report Type: Spontaneous
  Country: CN (occurrence: CN)
  Receive Date: 20230912
  Receipt Date: 20250822
  Transmission Date: 20251021
  Serious: Yes (Hospitalization, Other)
  Sender: RANBAXY
  Company Number: CN-SUN PHARMACEUTICAL INDUSTRIES LTD-2023R1-406947

PATIENT
  Sex: Male
  Weight: 58.4 kg

DRUGS (1)
  1. ODOMZO [Suspect]
     Active Substance: SONIDEGIB
     Indication: Basal cell carcinoma
     Dosage: 200 MILLIGRAM, QD
     Route: 048
     Dates: start: 20230722

REACTIONS (2)
  - Hydronephrosis [Not Recovered/Not Resolved]
  - Ureteric stenosis [Recovering/Resolving]

NARRATIVE: CASE EVENT DATE: 20230826
